FAERS Safety Report 6173798-2 (Version None)
Quarter: 2009Q2

REPORT INFORMATION
  Report Type: 
  Country: None (occurrence: None)
  Receive Date: 20090429
  Receipt Date: 20090429
  Transmission Date: 20091009
  Serious: No
  Sender: FDA-Public Use
  Company Number: None

PATIENT
  Age: 30 Year
  Sex: Male
  Weight: 78.9259 kg

DRUGS (1)
  1. LEVAQUIN [Suspect]
     Indication: SINUSITIS
     Dosage: 500MG ONCE A DAY PO
     Route: 048
     Dates: start: 20090417, end: 20090419

REACTIONS (7)
  - ABNORMAL DREAMS [None]
  - ARTHRALGIA [None]
  - FEELING ABNORMAL [None]
  - PAIN IN EXTREMITY [None]
  - PERIPHERAL NERVE INJURY [None]
  - VISION BLURRED [None]
  - WALKING AID USER [None]
